FAERS Safety Report 4700182-8 (Version None)
Quarter: 2005Q2

REPORT INFORMATION
  Report Type: 
  Country: None (occurrence: None)
  Receive Date: 20050627
  Receipt Date: 20050617
  Transmission Date: 20051028
  Serious: Yes (Other)
  Sender: FDA-Public Use
  Company Number: US-GLAXOSMITHKLINE-A0563530A

PATIENT
  Age: 65 Year
  Sex: Male

DRUGS (1)
  1. ECOTRIN REGULAR STRENGTH TABLETS [Suspect]
     Indication: PROPHYLAXIS
     Route: 048

REACTIONS (2)
  - GASTROINTESTINAL HAEMORRHAGE [None]
  - HAEMATOCHEZIA [None]
